FAERS Safety Report 5488311-2 (Version None)
Quarter: 2007Q4

REPORT INFORMATION
  Report Type: 
  Country: None (occurrence: None)
  Receive Date: 20071017
  Receipt Date: 20070919
  Transmission Date: 20080405
  Serious: Yes (Death, Hospitalization, Other)
  Sender: FDA-Public Use
  Company Number: PHHO2007JP04019

PATIENT
  Age: 74 Year
  Sex: Male
  Weight: 46 kg

DRUGS (20)
  1. ENTACAPONE [Suspect]
     Indication: PARKINSON'S DISEASE
     Dosage: 200MG QID (800MG/DAY)
     Route: 048
     Dates: start: 20031025, end: 20050311
  2. ENTACAPONE [Suspect]
     Dosage: 100MG QID (400MG/DAY)
     Route: 048
     Dates: start: 20050312, end: 20070725
  3. FAMOTIDINE [Concomitant]
     Indication: GASTRIC ULCER
  4. SEVEN EP [Concomitant]
     Indication: DYSPEPSIA
  5. MUCOSTA [Concomitant]
     Indication: GASTRIC ULCER
  6. EC DOPARL [Concomitant]
     Indication: PARKINSON'S DISEASE
  7. MAGNESIUM OXIDE [Concomitant]
     Indication: CONSTIPATION
  8. LECICARBON [Concomitant]
     Indication: CONSTIPATION
  9. POSTERISAN [Concomitant]
     Indication: HAEMORRHOIDS
  10. LANSOPRAZOLE [Concomitant]
     Indication: REFLUX OESOPHAGITIS
  11. LACTEC [Concomitant]
     Indication: FLUID REPLACEMENT
  12. ALLOID [Concomitant]
     Indication: PROPHYLAXIS
  13. AMOBAN [Concomitant]
     Indication: CONSTIPATION
  14. ISOTONIC SOLUTIONS [Concomitant]
  15. OMNIPAQUE 140 [Concomitant]
  16. PURSENNID [Concomitant]
  17. CALONAL [Concomitant]
  18. LACTATED RINGER'S [Concomitant]
  19. SOLITA-T 3G [Concomitant]
  20. ENEMA [Concomitant]

REACTIONS (13)
  - CARDIAC ARREST [None]
  - CONCOMITANT DISEASE PROGRESSION [None]
  - DYSPHAGIA [None]
  - METASTASES TO LYMPH NODES [None]
  - OESOPHAGEAL CARCINOMA [None]
  - OESOPHAGEAL STENOSIS [None]
  - ORAL INTAKE REDUCED [None]
  - RESPIRATORY ARREST [None]
  - SPUTUM RETENTION [None]
  - STENT OCCLUSION [None]
  - STENT PLACEMENT [None]
  - VOMITING [None]
  - WEIGHT DECREASED [None]
